FAERS Safety Report 18486841 (Version 1)
Quarter: 2020Q4

REPORT INFORMATION
  Report Type: Spontaneous
  Country: US (occurrence: US)
  Receive Date: 20201110
  Receipt Date: 20201110
  Transmission Date: 20210114
  Serious: Yes (Other)
  Sender: FDA-Public Use
  Company Number: US-PURDUE-USA-2020-0174113

PATIENT
  Sex: Female

DRUGS (7)
  1. OXYCODONE HCL TABLETS (RHODES 91-490) [Suspect]
     Active Substance: OXYCODONE HYDROCHLORIDE
     Indication: FOOT FRACTURE
     Dosage: UNK, UNK
     Route: 048
     Dates: start: 2010
  2. TRAMADOL. [Suspect]
     Active Substance: TRAMADOL
     Indication: FOOT FRACTURE
     Dosage: UNK, UNK
     Route: 048
  3. HYDROCODONE BITARTRATE AND ACETAMINOPHEN [Suspect]
     Active Substance: ACETAMINOPHEN\HYDROCODONE BITARTRATE
     Indication: FOOT FRACTURE
     Dosage: UNK, UNK
     Route: 048
  4. OXYCODONE/ ACETAMINOPHEN TABLETS [Suspect]
     Active Substance: ACETAMINOPHEN\OXYCODONE HYDROCHLORIDE
     Indication: FOOT FRACTURE
     Dosage: UNK, UNK
     Route: 048
  5. MORPHINE SULFATE EXTENDED-RELEASE TABLETS (RHODES 74-769, 74-862) [Suspect]
     Active Substance: MORPHINE SULFATE
     Indication: FOOT FRACTURE
     Dosage: UNK, UNK
     Route: 048
  6. FENTANYL. [Suspect]
     Active Substance: FENTANYL
     Indication: FOOT FRACTURE
     Dosage: UNK, UNK
     Route: 062
  7. OXYCONTIN [Suspect]
     Active Substance: OXYCODONE HYDROCHLORIDE
     Indication: FOOT FRACTURE
     Dosage: UNK, UNK
     Route: 048
     Dates: start: 2010

REACTIONS (6)
  - Suicidal ideation [Unknown]
  - Anxiety [Unknown]
  - Drug dependence [Unknown]
  - Overdose [Unknown]
  - Suicide attempt [Unknown]
  - Depression [Unknown]
